FAERS Safety Report 4325864-1 (Version None)
Quarter: 2004Q1

REPORT INFORMATION
  Report Type: 
  Country: None (occurrence: None)
  Receive Date: 20040329
  Receipt Date: 20020516
  Transmission Date: 20041129
  Serious: Yes (Death, Hospitalization)
  Sender: FDA-Public Use
  Company Number: US-MERCK-0205USA01999

PATIENT
  Age: 74 Year
  Sex: Female
  Weight: 100 kg

DRUGS (7)
  1. ALLOPURINOL [Concomitant]
     Indication: HYPERURICAEMIA
     Route: 065
     Dates: start: 19901106
  2. LIPITOR [Concomitant]
     Indication: HYPERCHOLESTEROLAEMIA
     Route: 065
     Dates: start: 19990807, end: 20010224
  3. CELEXA [Concomitant]
     Indication: DEPRESSION
     Route: 065
     Dates: start: 19981210
  4. ESTRATEST [Concomitant]
     Indication: HORMONE REPLACEMENT THERAPY
     Route: 065
     Dates: start: 19901023, end: 20010224
  5. VIOXX [Suspect]
     Indication: OSTEOARTHRITIS
     Route: 048
     Dates: start: 20001228, end: 20010219
  6. VIOXX [Suspect]
     Indication: ANALGESIC EFFECT
     Route: 048
     Dates: start: 20001228, end: 20010219
  7. STUDY DRUG (UNSPECIFIED) [Concomitant]
     Indication: HYPERTENSION
     Route: 065
     Dates: start: 20001213, end: 20010201

REACTIONS (4)
  - COMA [None]
  - HAEMORRHAGIC STROKE [None]
  - HYPERTENSION [None]
  - RESPIRATORY FAILURE [None]
